FAERS Safety Report 7052297-X (Version None)
Quarter: 2010Q4

REPORT INFORMATION
  Report Type: 
  Country: None (occurrence: None)
  Receive Date: 20101019
  Receipt Date: 20101014
  Transmission Date: 20110411
  Serious: Yes (Death)
  Sender: FDA-Public Use
  Company Number: JP-ELI_LILLY_AND_COMPANY-JP201010003665

PATIENT
  Sex: Female
  Weight: 39.6 kg

DRUGS (12)
  1. HUMATROPE [Suspect]
     Indication: GROWTH HORMONE DEFICIENCY
     Dosage: 0.1 MG, DAILY (1/D)
     Route: 058
     Dates: start: 20060526, end: 20070212
  2. HUMATROPE [Suspect]
     Dosage: 0.1 MG, DAILY (1/D)
     Route: 058
     Dates: start: 20070217, end: 20080525
  3. HUMATROPE [Suspect]
     Dosage: 0.2 MG, DAILY (1/D)
     Route: 058
     Dates: start: 20080526
  4. THYRADIN S [Concomitant]
     Indication: SECONDARY HYPOTHYROIDISM
     Dosage: 25 UG, DAILY (1/D)
     Route: 048
     Dates: start: 19810507
  5. DESMOPRESSIN /00361902/ [Concomitant]
     Indication: DIABETES INSIPIDUS
     Dosage: 0.25 ML, DAILY (1/D)
     Route: 045
     Dates: start: 19810507, end: 20080801
  6. DESMOPRESSIN /00361902/ [Concomitant]
     Dosage: 0.5 ML, DAILY (1/D)
     Route: 045
     Dates: start: 20080801
  7. CORTRIL [Concomitant]
     Indication: ADRENAL INSUFFICIENCY
     Dosage: 35 MG, DAILY (1/D)
     Route: 048
     Dates: start: 19810307, end: 20090318
  8. CORTRIL [Concomitant]
     Dosage: 20 MG, DAILY (1/D)
     Route: 048
     Dates: start: 20090319
  9. ASPIRIN [Concomitant]
     Indication: CEREBRAL INFARCTION
     Dosage: 100 MG, UNKNOWN
     Route: 048
     Dates: start: 20090318
  10. LIPITOR [Concomitant]
     Indication: HYPERLIPIDAEMIA
     Dosage: 10 MG, UNKNOWN
     Route: 048
     Dates: start: 20090318
  11. PROTECADIN [Concomitant]
     Indication: PROPHYLAXIS
     Dosage: 20 MG, UNK
     Route: 048
     Dates: start: 20090318
  12. FOSAMAC [Concomitant]
     Indication: OSTEOPOROSIS
     Dosage: 35 MG, WEEKLY (1/W)
     Route: 048
     Dates: start: 20090320

REACTIONS (1)
  - CEREBROVASCULAR DISORDER [None]
